FAERS Safety Report 7705955-5 (Version None)
Quarter: 2011Q3

REPORT INFORMATION
  Report Type: 
  Country: None (occurrence: None)
  Receive Date: 20110824
  Receipt Date: 20110812
  Transmission Date: 20111222
  Serious: Yes (Hospitalization)
  Sender: FDA-Public Use
  Company Number: PHHO2011DE13844

PATIENT
  Age: 59 Year
  Sex: Male
  Weight: 92 kg

DRUGS (5)
  1. LEVOTHYROXINE SODIUM [Concomitant]
     Dosage: 75 MG, DAILY
     Route: 048
     Dates: start: 20101110
  2. NITRENDIPIN [Concomitant]
     Indication: HYPERTENSION
     Dosage: 10 MG, DAILY
     Route: 048
     Dates: start: 20100601, end: 20110805
  3. NITRENDIPIN [Concomitant]
     Dosage: 5 MG, DAILY
     Route: 048
     Dates: start: 20110809, end: 20110811
  4. AFINITOR [Suspect]
     Dosage: 5 MG, DAILY
     Route: 048
     Dates: start: 20110808, end: 20110812
  5. AFINITOR [Suspect]
     Indication: METASTATIC RENAL CELL CARCINOMA
     Dosage: 10 MG, DAILY
     Route: 048
     Dates: start: 20110512, end: 20110807

REACTIONS (1)
  - GENERAL PHYSICAL HEALTH DETERIORATION [None]
